FAERS Safety Report 7394919-X (Version None)
Quarter: 2011Q2

REPORT INFORMATION
  Report Type: 
  Country: None (occurrence: None)
  Receive Date: 20110405
  Receipt Date: 20110329
  Transmission Date: 20111010
  Serious: Yes (Other)
  Sender: FDA-Public Use
  Company Number: B0710142A

PATIENT
  Sex: Female
  Weight: 9.1 kg

DRUGS (13)
  1. BIOFERMIN R [Concomitant]
     Route: 048
     Dates: start: 20081113, end: 20090114
  2. SODIUM CHLORIDE [Concomitant]
     Dosage: 1.5IUAX PER DAY
     Route: 042
     Dates: end: 20081117
  3. ALKERAN [Suspect]
     Dosage: 14MG PER DAY
     Route: 042
     Dates: start: 20081112, end: 20081113
  4. VALPROIC ACID [Concomitant]
     Dosage: 150MG PER DAY
     Route: 048
     Dates: start: 20081105, end: 20081115
  5. AZUNOL [Concomitant]
     Route: 061
     Dates: start: 20081107, end: 20081224
  6. ANDERM [Concomitant]
     Dosage: 1IUAX PER DAY
     Route: 061
     Dates: start: 20081111, end: 20081111
  7. ALKERAN [Suspect]
     Indication: STEM CELL TRANSPLANT
     Dosage: 14MG PER DAY
     Route: 042
     Dates: start: 20081105, end: 20081106
  8. GLYCYRON [Concomitant]
     Dosage: 2IUAX PER DAY
     Route: 048
     Dates: end: 20081109
  9. THIOTEPA [Suspect]
     Indication: STEM CELL TRANSPLANT
     Dosage: 73MG PER DAY
     Dates: start: 20081105, end: 20081106
  10. BAKTAR [Concomitant]
     Route: 048
     Dates: end: 20090109
  11. SOLDEM 3A [Concomitant]
     Dosage: 1IUAX PER DAY
     Route: 042
     Dates: end: 20081120
  12. THIOTEPA [Suspect]
     Dosage: 73MG PER DAY
     Dates: start: 20081112, end: 20081113
  13. TRICLORYL [Concomitant]
     Dosage: 9ML PER DAY
     Route: 048
     Dates: end: 20081105

REACTIONS (2)
  - SEPSIS [None]
  - PSEUDOMONAS TEST POSITIVE [None]
